FAERS Safety Report 21786719 (Version 1)
Quarter: 2022Q4

REPORT INFORMATION
  Report Type: Spontaneous
  Country: US (occurrence: None)
  Receive Date: 20221228
  Receipt Date: 20221228
  Transmission Date: 20230113
  Serious: Yes (Death, Other)
  Sender: FDA-Public Use
  Company Number: US-ROCHE-3250242

PATIENT
  Age: 72 Year
  Sex: Male

DRUGS (16)
  1. RITUXAN [Suspect]
     Active Substance: RITUXIMAB
     Indication: Diffuse large B-cell lymphoma
     Route: 065
  2. ATORVASTATIN [Concomitant]
     Active Substance: ATORVASTATIN
  3. BREO ELLIPTA [Concomitant]
     Active Substance: FLUTICASONE FUROATE\VILANTEROL TRIFENATATE
  4. CARAFATE [Concomitant]
     Active Substance: SUCRALFATE
     Dosage: 100 MG/ML
     Route: 048
  5. CELEBREX [Concomitant]
     Active Substance: CELECOXIB
  6. DILAUDID [Concomitant]
     Active Substance: HYDROMORPHONE HYDROCHLORIDE
  7. DOCUSATE SODIUM [Concomitant]
     Active Substance: DOCUSATE SODIUM
  8. FLOMAX CAPSULE [Concomitant]
  9. GABAPENTIN [Concomitant]
     Active Substance: GABAPENTIN
  10. LOSARTAN [Concomitant]
     Active Substance: LOSARTAN
  11. METHOCARBAMOL [Concomitant]
     Active Substance: METHOCARBAMOL
  12. HYDROCORTISONE [Concomitant]
     Active Substance: HYDROCORTISONE
  13. NEULASTA [Concomitant]
     Active Substance: PEGFILGRASTIM
  14. OXYCODONE [Concomitant]
     Active Substance: OXYCODONE
  15. PREDNISONE [Concomitant]
     Active Substance: PREDNISONE
  16. PRAMIPEXOLE [Concomitant]
     Active Substance: PRAMIPEXOLE

REACTIONS (5)
  - Chronic obstructive pulmonary disease [Unknown]
  - COVID-19 pneumonia [Unknown]
  - Deep vein thrombosis [Unknown]
  - Dyspnoea [Unknown]
  - Death [Fatal]

NARRATIVE: CASE EVENT DATE: 20220715
